FAERS Safety Report 15959676 (Version 1)
Quarter: 2019Q1

REPORT INFORMATION
  Report Type: Spontaneous
  Country: US (occurrence: US)
  Receive Date: 20190214
  Receipt Date: 20190214
  Transmission Date: 20190417
  Serious: No
  Sender: FDA-Public Use
  Company Number: US-ASTRAZENECA-2019SE24815

PATIENT

DRUGS (1)
  1. PRILOSEC OTC [Suspect]
     Active Substance: OMEPRAZOLE MAGNESIUM
     Indication: DYSPEPSIA
     Dosage: UNKNOWN DOSE AND FREQUENCY FOR 4 DAYS
     Route: 048

REACTIONS (4)
  - Palpitations [Unknown]
  - Nausea [Unknown]
  - Blood glucose increased [Unknown]
  - Anxiety [Unknown]
